FAERS Safety Report 5919292-2 (Version None)
Quarter: 2008Q4

REPORT INFORMATION
  Report Type: 
  Country: None (occurrence: None)
  Receive Date: 20081015
  Receipt Date: 20081006
  Transmission Date: 20090506
  Serious: Yes (Other)
  Sender: FDA-Public Use
  Company Number: PHHY2008BR23938

PATIENT
  Age: 64 Year
  Sex: Female
  Weight: 60 kg

DRUGS (3)
  1. ZELMAC [Suspect]
     Indication: ABDOMINAL PAIN
     Dosage: 6 MG, QD SPORADICALLY
     Route: 048
  2. DIOVAN HCT [Concomitant]
     Dosage: (80/12.5) MG/DAY ; 1 TABLET DAILY
     Route: 048
  3. SUSTRATE [Concomitant]
     Indication: CARDIAC DISORDER
     Dosage: 1 TABLET DAILY
     Route: 048

REACTIONS (5)
  - ARRHYTHMIA [None]
  - ASTHENIA [None]
  - BLOOD PRESSURE INCREASED [None]
  - HEART RATE INCREASED [None]
  - SYNCOPE [None]
